APPROVED DRUG PRODUCT: BETADINE
Active Ingredient: POVIDONE-IODINE
Strength: 5%
Dosage Form/Route: SOLUTION/DROPS;OPHTHALMIC
Application: N018634 | Product #001
Applicant: ALCON PHARMACEUTICALS LTD
Approved: Dec 17, 1986 | RLD: Yes | RS: Yes | Type: RX